FAERS Safety Report 13153423 (Version 1)
Quarter: 2017Q1

REPORT INFORMATION
  Report Type: Spontaneous
  Country: FR (occurrence: FR)
  Receive Date: 20170126
  Receipt Date: 20170126
  Transmission Date: 20170428
  Serious: Yes (Other)
  Sender: FDA-Public Use
  Company Number: FR-ROCHE-1884944

PATIENT
  Age: 57 Year
  Sex: Female

DRUGS (1)
  1. ROACTEMRA [Suspect]
     Active Substance: TOCILIZUMAB
     Indication: RHEUMATOID ARTHRITIS
     Dosage: SOLUTION FOR INFUSION 20MG/ML
     Route: 042
     Dates: start: 201503, end: 20161007

REACTIONS (4)
  - Aspartate aminotransferase increased [Recovering/Resolving]
  - Hepatocellular injury [Recovering/Resolving]
  - Alanine aminotransferase increased [Recovering/Resolving]
  - Neutropenia [Not Recovered/Not Resolved]

NARRATIVE: CASE EVENT DATE: 201602
